FAERS Safety Report 13444225 (Version 2)
Quarter: 2017Q2

REPORT INFORMATION
  Report Type: Spontaneous
  Country: DE (occurrence: DE)
  Receive Date: 20170414
  Receipt Date: 20170512
  Transmission Date: 20170830
  Serious: Yes (Hospitalization, Other)
  Sender: FDA-Public Use
  Company Number: DE-PFIZER INC-2017158254

PATIENT
  Age: 46 Year
  Sex: Female
  Weight: 90 kg

DRUGS (2)
  1. METFORMIN [Concomitant]
     Active Substance: METFORMIN HYDROCHLORIDE
     Indication: DIABETES MELLITUS
     Dosage: 500 MG, DAILY
  2. SAYANA [Suspect]
     Active Substance: MEDROXYPROGESTERONE
     Indication: CONTRACEPTION
     Dosage: UNK UNK, SINGLE
     Route: 058

REACTIONS (8)
  - Cellulitis [Unknown]
  - Injection site abscess [Unknown]
  - Injection site pain [Unknown]
  - Injection site necrosis [Unknown]
  - Product quality issue [Unknown]
  - Underdose [Unknown]
  - Injection site erythema [Unknown]
  - Injection site swelling [Unknown]
